FAERS Safety Report 14777548 (Version 3)
Quarter: 2018Q3

REPORT INFORMATION
  Report Type: Spontaneous
  Country: US (occurrence: US)
  Receive Date: 20180419
  Receipt Date: 20180704
  Transmission Date: 20181010
  Serious: No
  Sender: FDA-Public Use
  Company Number: US-PFIZER INC-2018154193

PATIENT
  Age: 71 Year
  Sex: Female

DRUGS (2)
  1. LATANOPROST. [Suspect]
     Active Substance: LATANOPROST
     Dosage: 1 GTT, 1X/DAY (EACH EYE DAILY AT BED TIME)
     Route: 047
     Dates: start: 2017
  2. LATANOPROST. [Suspect]
     Active Substance: LATANOPROST
     Indication: GLAUCOMA
     Dosage: 1 GTT, 1X/DAY (EACH EYE DAILY AT BED TIME)
     Route: 047
     Dates: start: 2017

REACTIONS (5)
  - Joint range of motion decreased [Not Recovered/Not Resolved]
  - Product packaging quantity issue [Unknown]
  - Poor quality drug administered [Unknown]
  - Drug dose omission [Unknown]
  - Chondrocalcinosis pyrophosphate [Not Recovered/Not Resolved]

NARRATIVE: CASE EVENT DATE: 2017
